FAERS Safety Report 5598529-6 (Version None)
Quarter: 2008Q1

REPORT INFORMATION
  Report Type: 
  Country: None (occurrence: None)
  Receive Date: 20080122
  Receipt Date: 20080114
  Transmission Date: 20080703
  Serious: Yes (Other)
  Sender: FDA-Public Use
  Company Number: US-JNJFOC-20071000205

PATIENT
  Sex: Male
  Weight: 112.49 kg

DRUGS (10)
  1. REMICADE [Suspect]
     Route: 042
  2. REMICADE [Suspect]
     Dosage: 1 INFUSION ON UNKNOWN DATE
     Route: 042
  3. REMICADE [Suspect]
     Indication: RHEUMATOID ARTHRITIS
     Route: 042
  4. CELEBREX [Concomitant]
  5. MTX [Concomitant]
  6. FOLIC ACID [Concomitant]
  7. LODINE [Concomitant]
  8. PREDNISONE [Concomitant]
  9. METHOTREXATE [Concomitant]
  10. LEFLUNOMIDE [Concomitant]

REACTIONS (2)
  - CAROTID ENDARTERECTOMY [None]
  - HODGKIN'S DISEASE [None]
